FAERS Safety Report 16930764 (Version 1)
Quarter: 2019Q4

REPORT INFORMATION
  Report Type: Spontaneous
  Country: GB (occurrence: GB)
  Receive Date: 20191017
  Receipt Date: 20191017
  Transmission Date: 20200122
  Serious: Yes (Other)
  Sender: FDA-Public Use
  Company Number: GB-MYLANLABS-2019M1097590

PATIENT
  Age: 39 Year
  Sex: Male
  Weight: 75 kg

DRUGS (3)
  1. COCAINE [Concomitant]
     Active Substance: COCAINE
     Dosage: UNK
  2. DIAMORPHINE [Concomitant]
     Active Substance: DIAMORPHINE
     Dosage: UNK
  3. BUPRENORPHINE. [Suspect]
     Active Substance: BUPRENORPHINE
     Indication: PRODUCT USED FOR UNKNOWN INDICATION
     Dosage: 6 MILLIGRAM
     Route: 060
     Dates: start: 20190606

REACTIONS (3)
  - Pruritus [Unknown]
  - Feeling abnormal [Unknown]
  - Formication [Unknown]

NARRATIVE: CASE EVENT DATE: 20190625
